FAERS Safety Report 13670351 (Version 2)
Quarter: 2017Q2

REPORT INFORMATION
  Report Type: Report from Study
  Country: AT (occurrence: AT)
  Receive Date: 20170620
  Receipt Date: 20170623
  Transmission Date: 20170830
  Serious: Yes (Death, Other)
  Sender: FDA-Public Use
  Company Number: PHHY2017AT089790

PATIENT
  Sex: Male

DRUGS (2)
  1. PKC412 [Suspect]
     Active Substance: MIDOSTAURIN
     Indication: SYSTEMIC MASTOCYTOSIS
     Dosage: 100 MG, BID
     Route: 048
     Dates: end: 20170302
  2. ARA-C [Concomitant]
     Active Substance: CYTARABINE
     Indication: ACUTE MYELOID LEUKAEMIA
     Route: 065

REACTIONS (5)
  - Malignant neoplasm progression [Fatal]
  - Pneumonia [Fatal]
  - Therapy non-responder [Unknown]
  - Acute myeloid leukaemia [Fatal]
  - Blast cell crisis [Fatal]
